FAERS Safety Report 12632679 (Version 2)
Quarter: 2016Q3

REPORT INFORMATION
  Report Type: Spontaneous
  Country: US (occurrence: US)
  Receive Date: 20160808
  Receipt Date: 20160808
  Transmission Date: 20161109
  Serious: No
  Sender: FDA-Public Use
  Company Number: US-BEH-2015056496

PATIENT
  Age: 72 Year
  Sex: Male
  Weight: 89 kg

DRUGS (22)
  1. ACETAMINOPHEN. [Concomitant]
     Active Substance: ACETAMINOPHEN
  2. OMEPRAZOLE. [Concomitant]
     Active Substance: OMEPRAZOLE
  3. HIZENTRA [Suspect]
     Active Substance: HUMAN IMMUNOGLOBULIN G
     Route: 058
  4. FLONASE [Concomitant]
     Active Substance: FLUTICASONE PROPIONATE
  5. RANEXA [Concomitant]
     Active Substance: RANOLAZINE
  6. HIZENTRA [Suspect]
     Active Substance: HUMAN IMMUNOGLOBULIN G
     Route: 058
  7. CRESTOR [Concomitant]
     Active Substance: ROSUVASTATIN CALCIUM
  8. HIZENTRA [Suspect]
     Active Substance: HUMAN IMMUNOGLOBULIN G
     Indication: IMMUNODEFICIENCY COMMON VARIABLE
     Route: 058
  9. L-M-X [Concomitant]
  10. SYNTHROID [Concomitant]
     Active Substance: LEVOTHYROXINE SODIUM
  11. AFRIN [Concomitant]
     Active Substance: OXYMETAZOLINE
  12. PSYLLIUM FIBER [Concomitant]
  13. LORATADINE. [Concomitant]
     Active Substance: LORATADINE
  14. TYLENOL EXTRA STRENGTH [Concomitant]
     Active Substance: ACETAMINOPHEN
  15. EPIPEN [Concomitant]
     Active Substance: EPINEPHRINE
  16. GABAPENTIN. [Concomitant]
     Active Substance: GABAPENTIN
  17. MULTIVITAMINS [Concomitant]
     Active Substance: VITAMINS
  18. VITAMIN D2 [Concomitant]
     Active Substance: ERGOCALCIFEROL
  19. PLAVIX [Concomitant]
     Active Substance: CLOPIDOGREL BISULFATE
  20. DIPHENHYDRAMINE. [Concomitant]
     Active Substance: DIPHENHYDRAMINE
  21. TRAMADOL. [Concomitant]
     Active Substance: TRAMADOL
  22. ASPIRIN EC [Concomitant]
     Active Substance: ASPIRIN

REACTIONS (5)
  - Rhinorrhoea [Unknown]
  - Bronchitis [Unknown]
  - Sinus congestion [Unknown]
  - Upper respiratory tract infection [Unknown]
  - Cough [Unknown]

NARRATIVE: CASE EVENT DATE: 20151128
